FAERS Safety Report 9897486 (Version 1)
Quarter: 2014Q1

REPORT INFORMATION
  Report Type: Spontaneous
  Country: US (occurrence: US)
  Receive Date: 20140214
  Receipt Date: 20140214
  Transmission Date: 20141002
  Serious: No
  Sender: FDA-Public Use
  Company Number: US-DRREDDYS-USA/USA/13/0035636

PATIENT
  Age: 70 Year
  Sex: Female
  Weight: 77.18 kg

DRUGS (1)
  1. ATORVASTATIN TABLETS 10MG, 20 MG + 40 MG (091650) [Suspect]
     Indication: BLOOD CHOLESTEROL INCREASED
     Route: 048
     Dates: start: 20131008, end: 20131018

REACTIONS (1)
  - Oral discomfort [Recovering/Resolving]
